FAERS Safety Report 22185888 (Version 1)
Quarter: 2023Q2

REPORT INFORMATION
  Report Type: Spontaneous
  Country: US (occurrence: US)
  Receive Date: 20230407
  Receipt Date: 20230407
  Transmission Date: 20230722
  Serious: No
  Sender: FDA-Public Use
  Company Number: US-PFIZER INC-PV202300063731

PATIENT
  Age: 61 Year
  Sex: Female

DRUGS (1)
  1. NURTEC ODT [Suspect]
     Active Substance: RIMEGEPANT SULFATE
     Indication: Migraine
     Dosage: 1 TABS INSTR:NOT TO EXCEED 75 MG IN 24 HOURS; ALLOW TABLET TO DISSOLVE ON TONGUE AS NEEDED
     Route: 048
     Dates: start: 202303, end: 202303

REACTIONS (2)
  - Drug ineffective [Not Recovered/Not Resolved]
  - Musculoskeletal discomfort [Unknown]
